FAERS Safety Report 6746372-4 (Version None)
Quarter: 2010Q2

REPORT INFORMATION
  Report Type: 
  Country: None (occurrence: None)
  Receive Date: 20100528
  Receipt Date: 20100520
  Transmission Date: 20101027
  Serious: Yes (Hospitalization)
  Sender: FDA-Public Use
  Company Number: NL-ROCHE-687916

PATIENT

DRUGS (6)
  1. CAPECITABINE [Suspect]
     Indication: GASTRIC CANCER
     Dosage: LAST DOSE PRIOR TO SAE: 25 JAN 2010
     Route: 065
     Dates: start: 20100125
  2. CAPECITABINE [Suspect]
     Route: 065
  3. CISPLATIN [Suspect]
     Indication: GASTRIC CANCER
     Dosage: LAST DOSE PRIOR TO SAE: 25 JAN 2010
     Route: 065
     Dates: start: 20100125
  4. CISPLATIN [Suspect]
     Route: 065
  5. EPIRUBICIN [Suspect]
     Indication: GASTRIC CANCER
     Dosage: LAST DOSE PRIOR TO SAE: 25 JAN 2010
     Route: 065
     Dates: start: 20100125
  6. NEXIUM [Concomitant]
     Dosage: NEXIUM 2DD40 MG
     Route: 048

REACTIONS (1)
  - GASTRIC PERFORATION [None]
